FAERS Safety Report 5630565-3 (Version None)
Quarter: 2008Q1

REPORT INFORMATION
  Report Type: 
  Country: None (occurrence: None)
  Receive Date: 20080219
  Receipt Date: 20080214
  Transmission Date: 20080703
  Serious: Yes (Disabling)
  Sender: FDA-Public Use
  Company Number: A0702434A

PATIENT
  Age: 30 Year
  Sex: Female
  Weight: 62.3 kg

DRUGS (3)
  1. IMITREX [Suspect]
     Indication: MIGRAINE
     Dosage: 100MG UNKNOWN
     Route: 048
     Dates: start: 20070101
  2. ADVAIR DISKUS 100/50 [Concomitant]
     Indication: ASTHMA
     Route: 055
     Dates: start: 20060101, end: 20070101
  3. ORAL CONTRACEPTIVE [Concomitant]
     Indication: MENSTRUAL DISORDER
     Route: 048

REACTIONS (1)
  - INTERMITTENT CLAUDICATION [None]
